FAERS Safety Report 7084859-8 (Version None)
Quarter: 2010Q4

REPORT INFORMATION
  Report Type: 
  Country: None (occurrence: None)
  Receive Date: 20101105
  Receipt Date: 20101021
  Transmission Date: 20110411
  Serious: Yes (Hospitalization)
  Sender: FDA-Public Use
  Company Number: DE-TEVA-253150GER

PATIENT
  Sex: Female
  Weight: 66 kg

DRUGS (6)
  1. FLUDARABINE [Suspect]
     Indication: ACUTE MYELOID LEUKAEMIA
     Route: 042
     Dates: start: 20100624, end: 20100628
  2. TREOSULFAN [Suspect]
     Indication: ACUTE MYELOID LEUKAEMIA
     Route: 042
     Dates: start: 20100624, end: 20100626
  3. CYTARABINE [Concomitant]
     Dates: start: 20100301, end: 20100501
  4. DAUNORUBICIN HCL [Concomitant]
     Dates: start: 20100301, end: 20100501
  5. SORAFENIB [Concomitant]
     Dates: start: 20100301, end: 20100501
  6. ANTI-THYMOCYTE GLOBULIN NOS [Suspect]
     Indication: ACUTE MYELOID LEUKAEMIA
     Route: 042
     Dates: start: 20100626, end: 20100628

REACTIONS (2)
  - SUBARACHNOID HAEMORRHAGE [None]
  - THROMBOCYTOPENIA [None]
